FAERS Safety Report 4418084-3 (Version None)
Quarter: 2004Q3

REPORT INFORMATION
  Report Type: 
  Country: None (occurrence: None)
  Receive Date: 20040730
  Receipt Date: 20040720
  Transmission Date: 20050211
  Serious: Yes (Hospitalization)
  Sender: FDA-Public Use
  Company Number: 2004SE04143

PATIENT
  Age: 56 Year
  Sex: Male
  Weight: 77 kg

DRUGS (8)
  1. ATACAND [Suspect]
     Indication: DIABETIC NEPHROPATHY
     Dosage: 2 OR 4 MG (0-4 W)
     Dates: start: 20040210, end: 20040308
  2. TCV-116 [Suspect]
     Indication: DIABETIC NEPHROPATHY
     Dosage: 2, 4, OR 8 MG (4-8 W)
     Dates: start: 20040309, end: 20040405
  3. TCV-116 [Suspect]
     Indication: DIABETIC NEPHROPATHY
     Dosage: 2, 4, 8, OR 16 MG (8-96 W)
     Dates: start: 20040406, end: 20040706
  4. MELBIN [Concomitant]
  5. GLIMICRON [Concomitant]
  6. NORVASC [Concomitant]
  7. ACINON [Concomitant]
  8. LIPITOR [Concomitant]

REACTIONS (5)
  - ANGINA UNSTABLE [None]
  - BLOOD PRESSURE SYSTOLIC INCREASED [None]
  - GLYCOSYLATED HAEMOGLOBIN INCREASED [None]
  - HEART RATE DECREASED [None]
  - MUSCULOSKELETAL STIFFNESS [None]
